FAERS Safety Report 22219241 (Version 1)
Quarter: 2023Q2

REPORT INFORMATION
  Report Type: Spontaneous
  Country: US (occurrence: US)
  Receive Date: 20230417
  Receipt Date: 20230417
  Transmission Date: 20230722
  Serious: No
  Sender: FDA-Public Use
  Company Number: US-SA-SAC20230414000428

PATIENT
  Age: 56 Year
  Sex: Female

DRUGS (13)
  1. DUPIXENT [Suspect]
     Active Substance: DUPILUMAB
     Indication: Asthma
     Dosage: 2 DF, 1X
     Route: 058
     Dates: start: 20230404, end: 20230404
  2. DUPIXENT [Suspect]
     Active Substance: DUPILUMAB
     Dosage: 300 MG, QOW
     Route: 058
  3. CETIRIZINE [Concomitant]
     Active Substance: CETIRIZINE HYDROCHLORIDE
  4. GABAPENTIN [Concomitant]
     Active Substance: GABAPENTIN
  5. TRELEGY ELLIPTA [Concomitant]
     Active Substance: FLUTICASONE FUROATE\UMECLIDINIUM BROMIDE\VILANTEROL TRIFENATATE
  6. PREMARIN [Concomitant]
     Active Substance: ESTROGENS, CONJUGATED
  7. SULINDAC [Concomitant]
     Active Substance: SULINDAC
  8. AZELASTINE [Concomitant]
     Active Substance: AZELASTINE
  9. ATORVASTATIN [Concomitant]
     Active Substance: ATORVASTATIN
  10. MONTELUKAST [Concomitant]
     Active Substance: MONTELUKAST SODIUM
  11. LEFLUNOMIDE [Concomitant]
     Active Substance: LEFLUNOMIDE
  12. LEVOTHYROXINE [Concomitant]
     Active Substance: LEVOTHYROXINE
  13. ESOMEPRAZOLE [Concomitant]
     Active Substance: ESOMEPRAZOLE

REACTIONS (2)
  - Impaired quality of life [Unknown]
  - Asthma [Unknown]

NARRATIVE: CASE EVENT DATE: 20230401
